FAERS Safety Report 9156253 (Version 1)
Quarter: 2013Q1

REPORT INFORMATION
  Report Type: Spontaneous
  Country: FR (occurrence: FR)
  Receive Date: 20130311
  Receipt Date: 20130311
  Transmission Date: 20140127
  Serious: Yes (Hospitalization, Other)
  Sender: FDA-Public Use
  Company Number: FR-ELI_LILLY_AND_COMPANY-FR201302009071

PATIENT
  Age: 65 Year
  Sex: Female

DRUGS (7)
  1. ZYPREXA [Suspect]
     Dosage: 1 DF, UNKNOWN
     Route: 048
  2. MIRTAZAPINE [Concomitant]
     Dosage: 1 DF, UNKNOWN
  3. ATARAX [Concomitant]
     Dosage: 1 DF, UNKNOWN
  4. SERESTA [Concomitant]
     Dosage: 1 DF, UNKNOWN
  5. LEXOMIL [Concomitant]
     Dosage: 1 DF, UNKNOWN
  6. NOCTAMIDE [Concomitant]
     Dosage: 1 DF, UNKNOWN
  7. DIVARIUS [Concomitant]
     Dosage: 1 DF, UNKNOWN

REACTIONS (3)
  - Loss of consciousness [Unknown]
  - Tonic convulsion [Unknown]
  - Hyponatraemia [Unknown]
